FAERS Safety Report 9573227 (Version 1)
Quarter: 2013Q3

REPORT INFORMATION
  Report Type: Spontaneous
  Country: US (occurrence: None)
  Receive Date: 20130930
  Receipt Date: 20130930
  Transmission Date: 20140515
  Serious: Yes (Life-Threatening, Hospitalization)
  Sender: FDA-Public Use
  Company Number: None

PATIENT
  Age: 2 Year
  Sex: Female
  Weight: 12.8 kg

DRUGS (1)
  1. ONCASPAR [Suspect]
     Indication: ACUTE LYMPHOCYTIC LEUKAEMIA
     Dosage: -- --

REACTIONS (7)
  - Cough [None]
  - Dyspnoea [None]
  - Crying [None]
  - Wheezing [None]
  - Oxygen saturation decreased [None]
  - Somnolence [None]
  - Heart rate increased [None]
